FAERS Safety Report 5607913-3 (Version None)
Quarter: 2008Q1

REPORT INFORMATION
  Report Type: 
  Country: None (occurrence: None)
  Receive Date: 20080130
  Receipt Date: 20080116
  Transmission Date: 20080703
  Serious: Yes (Death)
  Sender: FDA-Public Use
  Company Number: CA-JNJFOC-20061202563

PATIENT
  Age: 59 Year
  Sex: Female

DRUGS (4)
  1. FENTANYL [Suspect]
     Indication: PAIN MANAGEMENT
     Route: 062
  2. NORVASC [Concomitant]
     Indication: HYPERTENSION
  3. RAMIPRIL [Concomitant]
     Indication: DRUG USE FOR UNKNOWN INDICATION
  4. CHLORPHENIRAMINE MALEATE [Concomitant]
     Route: 065

REACTIONS (1)
  - CORONARY ARTERY DISEASE [None]
